FAERS Safety Report 10997286 (Version 1)
Quarter: 2015Q1

REPORT INFORMATION
  Report Type: Spontaneous
  Country: US (occurrence: None)
  Receive Date: 20150331
  Receipt Date: 20150331
  Transmission Date: 20150721
  Serious: Yes (Other)
  Sender: FDA-Public Use
  Company Number: PHEH2014US009095

PATIENT
  Age: 92 Year
  Sex: Female
  Weight: 47.6 kg

DRUGS (10)
  1. EXELON PATCH [Suspect]
     Active Substance: RIVASTIGMINE
     Dosage: UNK UKN, UNK, TRANSDERMAL
     Route: 062
  2. LORAZEPAM. [Concomitant]
     Active Substance: LORAZEPAM
  3. LISINOPRIL. [Concomitant]
     Active Substance: LISINOPRIL
  4. ASPIRIN (ACETYLSALICYLIC ACID) [Concomitant]
     Active Substance: ASPIRIN
  5. PAROXETINE [Concomitant]
     Active Substance: PAROXETINE\PAROXETINE HYDROCHLORIDE
  6. MIDODRINE [Concomitant]
     Active Substance: MIDODRINE
  7. NAPROXEN SODIUM. [Concomitant]
     Active Substance: NAPROXEN SODIUM
  8. VITAMIN B12 [Concomitant]
     Active Substance: CYANOCOBALAMIN
  9. MIDODRINE HCL (MIDODRINE HYDROCHLORIDE) [Concomitant]
  10. NAPROXEN. [Concomitant]
     Active Substance: NAPROXEN

REACTIONS (12)
  - Pain [None]
  - Anxiety [None]
  - Depression [None]
  - Hallucination [None]
  - Syncope [None]
  - Dehydration [None]
  - Urinary tract infection [None]
  - Insomnia [None]
  - Hypotension [None]
  - Decreased appetite [None]
  - Dizziness [None]
  - Diarrhoea [None]
